FAERS Safety Report 18162663 (Version 6)
Quarter: 2022Q3

REPORT INFORMATION
  Report Type: Spontaneous
  Country: US (occurrence: US)
  Receive Date: 20200818
  Receipt Date: 20220712
  Transmission Date: 20221027
  Serious: Yes (Hospitalization, Other)
  Sender: FDA-Public Use
  Company Number: US-PFIZER INC-2020319105

PATIENT
  Age: 72 Year
  Sex: Female
  Weight: 68.04 kg

DRUGS (2)
  1. XELJANZ XR [Suspect]
     Active Substance: TOFACITINIB CITRATE
     Indication: Rheumatoid arthritis
     Dosage: 11 MG, 1X/DAY
     Route: 048
     Dates: start: 202101
  2. LEFLUNOMIDE [Concomitant]
     Active Substance: LEFLUNOMIDE
     Indication: Psoriatic arthropathy
     Dosage: 20 MG, 1X/DAY
     Route: 048

REACTIONS (7)
  - Staphylococcal infection [Unknown]
  - Fall [Unknown]
  - Upper limb fracture [Unknown]
  - Foot operation [Unknown]
  - Body height decreased [Unknown]
  - Back disorder [Unknown]
  - Pain [Unknown]
